FAERS Safety Report 21434270 (Version 1)
Quarter: 2022Q4

REPORT INFORMATION
  Report Type: Report from Study
  Country: US (occurrence: US)
  Receive Date: 20221010
  Receipt Date: 20221010
  Transmission Date: 20230113
  Serious: No
  Sender: FDA-Public Use
  Company Number: US-ABBVIE-4142573

PATIENT
  Sex: Female

DRUGS (1)
  1. SKYRIZI [Suspect]
     Active Substance: RISANKIZUMAB-RZAA
     Indication: Psoriasis
     Route: 058
     Dates: start: 20211027

REACTIONS (5)
  - Cellulitis [Unknown]
  - Thrombosis [Unknown]
  - Vomiting [Unknown]
  - Pyrexia [Unknown]
  - Hyperhidrosis [Unknown]
